FAERS Safety Report 4506558-6 (Version None)
Quarter: 2004Q4

REPORT INFORMATION
  Report Type: 
  Country: None (occurrence: None)
  Receive Date: 20041122
  Receipt Date: 20041013
  Transmission Date: 20050328
  Serious: Yes (Death)
  Sender: FDA-Public Use
  Company Number: 200420140GDDC

PATIENT
  Age: 24 Year
  Sex: Female

DRUGS (3)
  1. CLOMIPHENE [Suspect]
     Indication: INFERTILITY
     Dosage: DOSE: 50 MG DAYS 2-6
     Route: 048
     Dates: start: 20040601
  2. CEPHALEXIN [Concomitant]
     Dosage: DOSE: UNK
  3. CETIRIZINE HCL [Concomitant]
     Dosage: DOSE: UNK

REACTIONS (3)
  - BLOOD PRESSURE SYSTOLIC INCREASED [None]
  - CEREBRAL HAEMORRHAGE [None]
  - MEAN CELL HAEMOGLOBIN CONCENTRATION DECREASED [None]
